FAERS Safety Report 9492533 (Version 1)
Quarter: 2013Q3

REPORT INFORMATION
  Report Type: Spontaneous
  Country: FR (occurrence: FR)
  Receive Date: 20130830
  Receipt Date: 20130830
  Transmission Date: 20140515
  Serious: Yes (Hospitalization)
  Sender: FDA-Public Use
  Company Number: PHHY2013FR094321

PATIENT
  Age: 90 Year
  Sex: Female

DRUGS (15)
  1. COTAREG [Suspect]
     Indication: HYPERTENSION
     Dosage: 1 DF (160/12.5 MG), QD
     Route: 048
     Dates: end: 20130723
  2. VOLTARENE LP [Suspect]
     Indication: CONDITION AGGRAVATED
     Dosage: 75 MG, QD
     Route: 048
     Dates: start: 20130719, end: 20130723
  3. VOLTARENE LP [Suspect]
     Indication: CRANIAL NERVE DISORDER
  4. MOPRAL [Suspect]
     Indication: GASTRIC DISORDER
     Dosage: UNK UKN, UNK
     Dates: start: 20130719, end: 20130723
  5. PRAVASTATIN AAA [Concomitant]
     Indication: HYPERCHOLESTEROLAEMIA
     Dosage: 20 MG, QD
  6. LEVOTHYROX [Concomitant]
     Indication: HYPOTHYROIDISM
     Dosage: 75 UG, QD
     Route: 048
  7. LOXEN [Concomitant]
     Indication: HYPERTENSION
     Dosage: 50 MG, QD
     Route: 048
  8. VERATRAN [Concomitant]
     Indication: CRANIAL NERVE DISORDER
     Dosage: 5 MG, QD
     Route: 048
     Dates: end: 20130723
  9. LAMALINE [Concomitant]
     Indication: CONDITION AGGRAVATED
     Dosage: 2 DF, TID
     Route: 048
     Dates: start: 2013, end: 2013
  10. LAMALINE [Concomitant]
     Indication: CRANIAL NERVE DISORDER
  11. DOLIPRANE [Concomitant]
     Indication: PAIN
     Dosage: 500 MG, TID
     Route: 048
     Dates: start: 20130721, end: 20130723
  12. SOLUPRED [Concomitant]
     Dosage: 20 MG, TID
     Route: 048
     Dates: start: 20130721, end: 20130723
  13. STILNOX [Concomitant]
     Dosage: 5 MG, QD
     Route: 048
     Dates: start: 20130719, end: 20130723
  14. IMOVANE [Concomitant]
     Dosage: 7.5 MG, QD
     Route: 048
  15. SALINE [Concomitant]

REACTIONS (1)
  - Hyponatraemia [Recovering/Resolving]
